FAERS Safety Report 4489231-2 (Version None)
Quarter: 2004Q4

REPORT INFORMATION
  Report Type: 
  Country: None (occurrence: None)
  Receive Date: 20041026
  Receipt Date: 20041018
  Transmission Date: 20050328
  Serious: Yes (Life-Threatening)
  Sender: FDA-Public Use
  Company Number: 2004AC00607

PATIENT
  Age: 22 Year
  Sex: Male

DRUGS (1)
  1. QUETIAPINE [Suspect]
     Dosage: 36 G ONCE PO
     Route: 048

REACTIONS (10)
  - AGITATION [None]
  - COMA [None]
  - CONFUSIONAL STATE [None]
  - DRUG TOXICITY [None]
  - HYPERGLYCAEMIA [None]
  - HYPOTENSION [None]
  - OVERDOSE [None]
  - RESPIRATORY ACIDOSIS [None]
  - RHABDOMYOLYSIS [None]
  - TACHYCARDIA [None]
